FAERS Safety Report 20005532 (Version 2)
Quarter: 2021Q4

REPORT INFORMATION
  Report Type: Spontaneous
  Country: US (occurrence: US)
  Receive Date: 20211028
  Receipt Date: 20211116
  Transmission Date: 20220303
  Serious: No
  Sender: FDA-Public Use
  Company Number: US-LUPIN PHARMACEUTICALS INC.-2021-20180

PATIENT
  Age: 50 Year
  Sex: Female

DRUGS (5)
  1. BUPROPION HYDROCHLORIDE [Suspect]
     Active Substance: BUPROPION HYDROCHLORIDE
     Indication: Anxiety
     Dosage: 150 MG
     Route: 065
     Dates: start: 20211001, end: 20211010
  2. ROSUVASTATIN [Concomitant]
     Active Substance: ROSUVASTATIN
     Indication: Blood cholesterol abnormal
     Dosage: 10 MG, QD
     Route: 065
  3. TOPIRAMATE [Concomitant]
     Active Substance: TOPIRAMATE
     Indication: Migraine
     Dosage: 25 MILLIGRAM, BID
     Route: 065
  4. RIZATRIPTAN [Concomitant]
     Active Substance: RIZATRIPTAN
     Indication: Migraine
     Dosage: 10 MG, PRN (AS NEEDED)
     Route: 065
  5. VITAMIN D2 [Suspect]
     Active Substance: ERGOCALCIFEROL
     Indication: Vitamin D decreased
     Dosage: UNK (STRENGTH: 50,000, ONCE A WEEK)
     Route: 065

REACTIONS (4)
  - Rash [Recovering/Resolving]
  - Peripheral swelling [Recovering/Resolving]
  - Pruritus [Recovering/Resolving]
  - Pain in extremity [Recovering/Resolving]

NARRATIVE: CASE EVENT DATE: 20211010
